FAERS Safety Report 26008415 (Version 1)
Quarter: 2025Q4

REPORT INFORMATION
  Report Type: Spontaneous
  Country: US (occurrence: US)
  Receive Date: 20251106
  Receipt Date: 20251106
  Transmission Date: 20260117
  Serious: No
  Sender: SANOFI AVENTIS
  Company Number: US-SA-2025SA330131

PATIENT
  Sex: Male
  Weight: 77.27 kg

DRUGS (19)
  1. DUPIXENT [Suspect]
     Active Substance: DUPILUMAB
     Indication: Asthma
     Dosage: 300 MG QOW
     Route: 058
  2. FLUTICASONE PROPIONATE [Concomitant]
     Active Substance: FLUTICASONE PROPIONATE
  3. ALBUTEROL SULFATE [Concomitant]
     Active Substance: ALBUTEROL SULFATE
  4. ALBUTEROL SULFATE [Concomitant]
     Active Substance: ALBUTEROL SULFATE
  5. CLINDAMYCIN HYDROCHLORIDE [Concomitant]
     Active Substance: CLINDAMYCIN HYDROCHLORIDE
  6. FERROUS SULFATE [Concomitant]
     Active Substance: FERROUS SULFATE
  7. CLONAZEPAM [Concomitant]
     Active Substance: CLONAZEPAM
  8. MIRABEGRON [Concomitant]
     Active Substance: MIRABEGRON
     Dosage: UNK, QD
  9. ESZOPICLONE [Concomitant]
     Active Substance: ESZOPICLONE
  10. DOXYCYCLINE HYCLATE [Concomitant]
     Active Substance: DOXYCYCLINE HYCLATE
  11. MAGNESIUM [Concomitant]
     Active Substance: MAGNESIUM
  12. CALCIUM [Concomitant]
     Active Substance: CALCIUM
  13. VITAMIN D NOS [Concomitant]
     Active Substance: CHOLECALCIFEROL\ERGOCALCIFEROL
  14. VITAMINS [Concomitant]
     Active Substance: VITAMINS
  15. BUPROPION HYDROCHLORIDE XL [Concomitant]
     Active Substance: BUPROPION HYDROCHLORIDE
     Dosage: UNK UNK, QD
  16. LANSOPRAZOLE [Concomitant]
     Active Substance: LANSOPRAZOLE
  17. QUETIAPINE FUMARATE [Concomitant]
     Active Substance: QUETIAPINE FUMARATE
  18. ANORO ELLIPTA [Concomitant]
     Active Substance: UMECLIDINIUM BROMIDE\VILANTEROL TRIFENATATE
  19. PREDNISONE [Concomitant]
     Active Substance: PREDNISONE

REACTIONS (2)
  - Asthma [Unknown]
  - Product dose omission issue [Unknown]
